FAERS Safety Report 24143228 (Version 1)
Quarter: 2024Q3

REPORT INFORMATION
  Report Type: Spontaneous
  Country: JP (occurrence: JP)
  Receive Date: 20240726
  Receipt Date: 20240726
  Transmission Date: 20241016
  Serious: Yes (Hospitalization, Other)
  Sender: BRECKENRIDGE
  Company Number: JP-Breckenridge Pharmaceutical, Inc.-2159671

PATIENT
  Age: 12 Year
  Sex: Female
  Weight: 29 kg

DRUGS (3)
  1. EPINASTINE HYDROCHLORIDE [Suspect]
     Active Substance: EPINASTINE HYDROCHLORIDE
     Route: 048
  2. HEPARINOID [Concomitant]
     Route: 062
  3. DELGOCITINIB [Concomitant]
     Active Substance: DELGOCITINIB

REACTIONS (2)
  - Enterocolitis [Recovered/Resolved]
  - Cyclic vomiting syndrome [Unknown]
